FAERS Safety Report 9753860 (Version 1)
Quarter: 2013Q4

REPORT INFORMATION
  Report Type: Spontaneous
  Country: US (occurrence: US)
  Receive Date: 20131213
  Receipt Date: 20131213
  Transmission Date: 20140711
  Serious: No
  Sender: FDA-Public Use
  Company Number: US-GILEAD-2010-0027666

PATIENT
  Sex: Female
  Weight: 52.16 kg

DRUGS (11)
  1. LETAIRIS [Suspect]
     Indication: PULMONARY ARTERIAL HYPERTENSION
     Route: 048
     Dates: start: 20100224
  2. VENTAVIS [Concomitant]
  3. COUMADIN [Concomitant]
  4. AMBIEN [Concomitant]
  5. SYNTHROID [Concomitant]
  6. EXFORGE [Concomitant]
  7. SOTALOL [Concomitant]
  8. DIDRONEL [Concomitant]
  9. ASPIRIN [Concomitant]
  10. CRESTOR [Concomitant]
  11. PRILOSEC [Concomitant]

REACTIONS (1)
  - Local swelling [Unknown]
